FAERS Safety Report 13588535 (Version 2)
Quarter: 2017Q3

REPORT INFORMATION
  Report Type: Report from Study
  Country: None (occurrence: CA)
  Receive Date: 20170529
  Receipt Date: 20170714
  Transmission Date: 20171127
  Serious: Yes (Other)
  Sender: FDA-Public Use
  Company Number: CA-ABBVIE-17K-028-1988654-00

PATIENT
  Sex: Female
  Weight: 71 kg

DRUGS (3)
  1. METHOTREXATE. [Concomitant]
     Active Substance: METHOTREXATE
     Indication: PRODUCT USED FOR UNKNOWN INDICATION
     Route: 048
     Dates: start: 20160308
  2. ENBREL [Concomitant]
     Active Substance: ETANERCEPT
     Indication: PRODUCT USED FOR UNKNOWN INDICATION
     Dates: start: 20160922, end: 20170505
  3. HUMIRA [Suspect]
     Active Substance: ADALIMUMAB
     Indication: RHEUMATOID ARTHRITIS
     Route: 058
     Dates: start: 20160211, end: 20160505

REACTIONS (4)
  - Vision blurred [Recovering/Resolving]
  - Ulcerative keratitis [Recovering/Resolving]
  - Ocular hyperaemia [Recovering/Resolving]
  - Eye pain [Recovering/Resolving]

NARRATIVE: CASE EVENT DATE: 20170419
